FAERS Safety Report 16335709 (Version 1)
Quarter: 2019Q2

REPORT INFORMATION
  Report Type: Spontaneous
  Country: FR (occurrence: FR)
  Receive Date: 20190521
  Receipt Date: 20190521
  Transmission Date: 20190711
  Serious: Yes (Other)
  Sender: FDA-Public Use
  Company Number: FR-ROCHE-2319054

PATIENT
  Sex: Female

DRUGS (2)
  1. TAXOL [Suspect]
     Active Substance: PACLITAXEL
     Indication: PRODUCT USED FOR UNKNOWN INDICATION
     Route: 042
  2. HERCEPTIN [Suspect]
     Active Substance: TRASTUZUMAB
     Indication: PRODUCT USED FOR UNKNOWN INDICATION
     Route: 042
     Dates: end: 20180328

REACTIONS (35)
  - Oedema peripheral [Recovered/Resolved]
  - Headache [Recovered/Resolved]
  - Dry mouth [Recovered/Resolved]
  - Blood pressure decreased [Recovered/Resolved]
  - Peripheral sensory neuropathy [Recovered/Resolved]
  - Acne [Recovered/Resolved]
  - Insomnia [Recovered/Resolved]
  - Arthralgia [Recovered/Resolved]
  - Ageusia [Recovered/Resolved]
  - Muscle spasms [Recovered/Resolved]
  - Tinnitus [Not Recovered/Not Resolved]
  - Dry skin [Recovered/Resolved]
  - Osteopenia [Recovered/Resolved]
  - Malaise [Recovered/Resolved]
  - Nausea [Recovered/Resolved]
  - Memory impairment [Recovered/Resolved]
  - Myalgia [Recovered/Resolved]
  - Nail disorder [Recovered/Resolved]
  - Deafness [Recovered/Resolved]
  - Constipation [Recovered/Resolved]
  - Vertigo [Recovered/Resolved]
  - Dyspnoea [Recovered/Resolved]
  - Pneumonia [Recovered/Resolved]
  - Decreased appetite [Recovered/Resolved]
  - Gastric disorder [Recovered/Resolved]
  - Asthenia [Recovered/Resolved]
  - Petechiae [Recovered/Resolved]
  - Disturbance in attention [Recovered/Resolved]
  - Balance disorder [Recovered/Resolved]
  - Sarcopenia [Recovered/Resolved]
  - Haemorrhoids [Recovered/Resolved]
  - Vulvovaginal dryness [Recovered/Resolved]
  - Bone pain [Recovered/Resolved]
  - Extrasystoles [Recovered/Resolved]
  - Cellulitis [Recovered/Resolved]
